FAERS Safety Report 19513800 (Version 1)
Quarter: 2021Q3

REPORT INFORMATION
  Report Type: Spontaneous
  Country: IN (occurrence: IN)
  Receive Date: 20210709
  Receipt Date: 20210709
  Transmission Date: 20211014
  Serious: Yes (Other)
  Sender: FDA-Public Use
  Company Number: IN-FERAPHARMA-2021-IN-000126

PATIENT
  Age: 42 Year
  Sex: Female

DRUGS (13)
  1. DEXAMETHASONE (NON?SPECIFIC) [Suspect]
     Active Substance: DEXAMETHASONE
     Indication: COVID-19
     Dosage: 6 MG DAILY
     Route: 048
  2. SALBUTAMOL [Concomitant]
     Active Substance: ALBUTEROL
  3. CEFOPERAZONE + SULBACTAM [Concomitant]
     Active Substance: CEFOPERAZONE SODIUM\SULBACTAM
  4. PANTOPRAZOLE [Concomitant]
     Active Substance: PANTOPRAZOLE
  5. REMDESIVIR. [Concomitant]
     Active Substance: REMDESIVIR
  6. IVERMECTIN. [Concomitant]
     Active Substance: IVERMECTIN
  7. MONTELUKAST + LEVOCETIRIZINE [Concomitant]
  8. AZITHROMYCIN ANHYDROUS. [Concomitant]
     Active Substance: AZITHROMYCIN ANHYDROUS
  9. DOXYCYCLINE. [Concomitant]
     Active Substance: DOXYCYCLINE
  10. VITAMIN C [Concomitant]
     Active Substance: ASCORBIC ACID
  11. BUDESONIDE + FORMOTEROL [Suspect]
     Active Substance: BUDESONIDE\FORMOTEROL
     Indication: PRODUCT USED FOR UNKNOWN INDICATION
     Dosage: 9200 AND 6 MICROGRAM TWICE DAILY
     Route: 055
  12. METHYLPREDNISOLONE. [Suspect]
     Active Substance: METHYLPREDNISOLONE
     Indication: PRODUCT USED FOR UNKNOWN INDICATION
     Dosage: 16 MG ONCE DAILY
     Route: 048
  13. HEPARIN [Concomitant]
     Active Substance: HEPARIN SODIUM

REACTIONS (1)
  - Chorioretinopathy [Unknown]
